FAERS Safety Report 12598133 (Version 1)
Quarter: 2016Q3

REPORT INFORMATION
  Report Type: Spontaneous
  Country: US (occurrence: US)
  Receive Date: 20160726
  Receipt Date: 20160726
  Transmission Date: 20161109
  Serious: No
  Sender: FDA-Public Use
  Company Number: US-SHIRE-US201609372

PATIENT
  Sex: Female

DRUGS (1)
  1. LIALDA [Suspect]
     Active Substance: MESALAMINE
     Indication: PRODUCT USED FOR UNKNOWN INDICATION
     Dosage: 4.8 G (1.2 G), 1X/DAY:QD
     Route: 048
     Dates: end: 2016

REACTIONS (2)
  - Cough [Recovered/Resolved]
  - Oral administration complication [Recovered/Resolved]

NARRATIVE: CASE EVENT DATE: 2016
